FAERS Safety Report 4779678-9 (Version None)
Quarter: 2005Q3

REPORT INFORMATION
  Report Type: 
  Country: None (occurrence: None)
  Receive Date: 20050923
  Receipt Date: 20050913
  Transmission Date: 20060218
  Serious: Yes (Other)
  Sender: FDA-Public Use
  Company Number: 2005127171

PATIENT
  Age: 44 Year
  Sex: Female
  Weight: 77.1115 kg

DRUGS (7)
  1. SOLU-MEDROL [Suspect]
     Indication: ASTHMA
     Dosage: INTRAVENOUS
     Route: 042
     Dates: start: 20050309, end: 20050309
  2. PREDNISONE [Suspect]
     Indication: ASTHMA
     Dosage: (0 MG, SINGLE), ORAL
     Route: 048
     Dates: start: 20050308, end: 20050308
  3. VICODIN [Suspect]
     Indication: CHEST PAIN
     Dosage: (PRN), ORAL
     Route: 048
     Dates: start: 20030801
  4. LISINOPRIL [Concomitant]
  5. PROZAC (FLUOXETINE HYROCHLORIDE) [Concomitant]
  6. ALBUTEROL [Concomitant]
  7. AZITHROMAX (AZITHROMAX) [Concomitant]

REACTIONS (11)
  - AMNESIA [None]
  - ASTHMA [None]
  - CONDITION AGGRAVATED [None]
  - DISEASE RECURRENCE [None]
  - DISORIENTATION [None]
  - FEELING ABNORMAL [None]
  - IMPAIRED DRIVING ABILITY [None]
  - LIMB INJURY [None]
  - LOSS OF CONSCIOUSNESS [None]
  - NAUSEA [None]
  - ROAD TRAFFIC ACCIDENT [None]
